FAERS Safety Report 6766325-X (Version None)
Quarter: 2010Q2

REPORT INFORMATION
  Report Type: 
  Country: None (occurrence: None)
  Receive Date: 20100611
  Receipt Date: 20100604
  Transmission Date: 20101027
  Serious: Yes (Hospitalization, Other)
  Sender: FDA-Public Use
  Company Number: US-SANOFI-AVENTIS-2010SA032547

PATIENT
  Age: 69 Year
  Sex: Male

DRUGS (7)
  1. PLAVIX [Suspect]
     Indication: THROMBOSIS PROPHYLAXIS
     Route: 048
     Dates: start: 20100128, end: 20100401
  2. ASPIRIN [Suspect]
     Route: 048
     Dates: end: 20100401
  3. COREG [Concomitant]
     Indication: BLOOD PRESSURE
     Dates: start: 20100201
  4. COREG [Concomitant]
     Dates: start: 20100418
  5. LISINOPRIL [Concomitant]
  6. PRAVASTATIN [Concomitant]
     Dates: start: 20100201
  7. PRAVASTATIN [Concomitant]
     Dates: start: 20100101

REACTIONS (5)
  - GASTROINTESTINAL HAEMORRHAGE [None]
  - GASTROINTESTINAL ULCER [None]
  - HAEMOGLOBIN DECREASED [None]
  - HYPOTENSION [None]
  - LOSS OF CONSCIOUSNESS [None]
